FAERS Safety Report 9687878 (Version 1)
Quarter: 2013Q4

REPORT INFORMATION
  Report Type: Spontaneous
  Country: US (occurrence: US)
  Receive Date: 20131114
  Receipt Date: 20131114
  Transmission Date: 20140711
  Serious: Yes (Hospitalization, Other)
  Sender: FDA-Public Use
  Company Number: US-009507513-1311USA003549

PATIENT
  Sex: Female

DRUGS (3)
  1. PEGINTRON [Suspect]
     Indication: HEPATITIS C
     Dosage: UNK, REDIPEN
     Dates: start: 20130524
  2. REBETOL [Suspect]
     Indication: HEPATITIS C
     Dosage: UNK
     Dates: start: 20130524
  3. VICTRELIS [Suspect]
     Indication: HEPATITIS C
     Dosage: UNK
     Dates: start: 20130621

REACTIONS (24)
  - Bone marrow failure [Unknown]
  - Bone marrow failure [Unknown]
  - Asthenia [Unknown]
  - Pancytopenia [Unknown]
  - Urticaria [Unknown]
  - Pain [Unknown]
  - Amnesia [Unknown]
  - Mental disorder [Unknown]
  - Depression [Unknown]
  - Hypoaesthesia [Unknown]
  - Paraesthesia [Unknown]
  - Motor dysfunction [Unknown]
  - Leukopenia [Unknown]
  - Gait disturbance [Unknown]
  - Amnesia [Unknown]
  - Disturbance in attention [Unknown]
  - Haemoglobin decreased [Unknown]
  - Weight decreased [Unknown]
  - Influenza like illness [Unknown]
  - Dyspnoea [Unknown]
  - Pruritus [Unknown]
  - Skin disorder [Unknown]
  - Blister [Unknown]
  - Urticaria [Unknown]
